FAERS Safety Report 7097506-6 (Version None)
Quarter: 2010Q4

REPORT INFORMATION
  Report Type: 
  Country: None (occurrence: None)
  Receive Date: 20101111
  Receipt Date: 20101028
  Transmission Date: 20110411
  Serious: Yes (Other)
  Sender: FDA-Public Use
  Company Number: PHHO2010CH16354

PATIENT
  Sex: Female

DRUGS (4)
  1. RAD001 [Suspect]
     Indication: HEPATIC NEOPLASM MALIGNANT
     Dosage: UNK
     Route: 048
     Dates: start: 20100831, end: 20101008
  2. AFINITOR [Suspect]
     Indication: HEPATIC NEOPLASM MALIGNANT
     Dosage: NO TREATMENT
  3. BLINDED NO TREATMENT RECEIVED NOMED [Suspect]
     Indication: HEPATIC NEOPLASM MALIGNANT
     Dosage: NO TREATMENT
  4. PLACEBO [Suspect]
     Indication: HEPATIC NEOPLASM MALIGNANT
     Dosage: NO TREATMENT

REACTIONS (4)
  - ANAEMIA [None]
  - HAEMANGIOMA [None]
  - HAEMORRHAGE [None]
  - PAIN [None]
